FAERS Safety Report 6769660-4 (Version None)
Quarter: 2010Q2

REPORT INFORMATION
  Report Type: 
  Country: None (occurrence: None)
  Receive Date: 20100615
  Receipt Date: 20100601
  Transmission Date: 20101027
  Serious: Yes (Death, Hospitalization, Other)
  Sender: FDA-Public Use
  Company Number: US-ASTRAZENECA-2010SE08037

PATIENT
  Age: 51 Year
  Sex: Female

DRUGS (10)
  1. TAMOXIFEN [Suspect]
     Indication: PROPHYLAXIS
     Route: 048
     Dates: start: 20060301, end: 20100124
  2. TAMOXIFEN [Suspect]
     Indication: BREAST CANCER
     Route: 048
     Dates: start: 20060301, end: 20100124
  3. VICODIN [Concomitant]
     Indication: HEADACHE
  4. PEPCID [Concomitant]
     Indication: DYSPEPSIA
  5. ACYCLOVIR [Concomitant]
  6. VITAMIN D [Concomitant]
     Dosage: 1000 UNIT DAILY
  7. MULTI-VITAMIN [Concomitant]
  8. BENADRYL [Concomitant]
     Indication: INSOMNIA
  9. SIMVASTATIN [Concomitant]
  10. CLOPIDOGREL [Concomitant]

REACTIONS (4)
  - CEREBRAL ARTERY OCCLUSION [None]
  - CEREBRAL INFARCTION [None]
  - CEREBROVASCULAR ACCIDENT [None]
  - THROMBOSIS [None]
